FAERS Safety Report 9310154 (Version 3)
Quarter: 2013Q2

REPORT INFORMATION
  Report Type: Spontaneous
  Country: AE (occurrence: AE)
  Receive Date: 20130527
  Receipt Date: 20130606
  Transmission Date: 20140414
  Serious: Yes (Other)
  Sender: FDA-Public Use
  Company Number: AE-AMGEN-ARESP2013035202

PATIENT
  Age: 29 Year
  Sex: Male

DRUGS (3)
  1. NPLATE [Suspect]
     Indication: IDIOPATHIC THROMBOCYTOPENIC PURPURA
     Dosage: 5 MUG/KG, UNK
     Route: 058
     Dates: start: 20121021, end: 20130520
  2. IMMUNOGLOBULIN                     /00025201/ [Concomitant]
  3. PREDNISOLONE [Concomitant]
     Indication: IDIOPATHIC THROMBOCYTOPENIC PURPURA
     Dosage: UNK UNK, QD
     Route: 048

REACTIONS (3)
  - Deep vein thrombosis [Unknown]
  - Platelet count decreased [Recovered/Resolved]
  - Pain in extremity [Unknown]
